FAERS Safety Report 23037124 (Version 1)
Quarter: 2023Q4

REPORT INFORMATION
  Report Type: Spontaneous
  Country: GB (occurrence: GB)
  Receive Date: 20231006
  Receipt Date: 20231006
  Transmission Date: 20240110
  Serious: No
  Sender: FDA-Public Use
  Company Number: None

PATIENT
  Age: 64 Year
  Sex: Female
  Weight: 45 kg

DRUGS (5)
  1. IBUPROFEN [Suspect]
     Active Substance: IBUPROFEN
     Indication: Product used for unknown indication
     Dosage: UNK (TABLET)
     Route: 065
  2. Adcal [Concomitant]
     Indication: Ill-defined disorder
     Dosage: UNK, TAKE TWO CAPLETS TWICE A DAY TO HELP PREVENT BO...
     Route: 065
     Dates: start: 20211122
  3. ALENDRONIC ACID [Concomitant]
     Active Substance: ALENDRONIC ACID
     Indication: Ill-defined disorder
     Dosage: UNK (TAKE ONE TABLET ON THE SAME DAY EACH WEEK TO HE)
     Route: 065
     Dates: start: 20211122
  4. BEVESPI AEROSPHERE [Concomitant]
     Active Substance: FORMOTEROL FUMARATE\GLYCOPYRROLATE
     Indication: Ill-defined disorder
     Dosage: UNK, BID (INHALE 2 DOSES TWICE DAILY)
     Dates: start: 20230613
  5. ALBUTEROL [Concomitant]
     Active Substance: ALBUTEROL
     Indication: Ill-defined disorder
     Dosage: UNK (INHALE ONE TO TWO PUFFS UP TO FOUR TIMES A DAY)
     Dates: start: 20230613

REACTIONS (1)
  - Rash pruritic [Recovered/Resolved]
